FAERS Safety Report 19958681 (Version 1)
Quarter: 2021Q4

REPORT INFORMATION
  Report Type: Spontaneous
  Country: US (occurrence: US)
  Receive Date: 20211012
  Receipt Date: 20211012
  Transmission Date: 20220303
  Serious: Yes (Hospitalization)
  Sender: FDA-Public Use
  Company Number: None

PATIENT
  Age: 60 Year
  Sex: Female

DRUGS (1)
  1. OPSUMIT [Suspect]
     Active Substance: MACITENTAN
     Indication: Pulmonary hypertension
     Route: 048
     Dates: start: 20190228

REACTIONS (5)
  - Dyspnoea [None]
  - Emphysema [None]
  - Blood urea decreased [None]
  - Electrocardiogram abnormal [None]
  - Blood creatinine increased [None]

NARRATIVE: CASE EVENT DATE: 20210921
